FAERS Safety Report 9617771 (Version 1)
Quarter: 2013Q4

REPORT INFORMATION
  Report Type: Spontaneous
  Country: IT (occurrence: None)
  Receive Date: 20131009
  Receipt Date: 20131009
  Transmission Date: 20140711
  Serious: Yes (Hospitalization)
  Sender: FDA-Public Use
  Company Number: SYM-2013-11315

PATIENT
  Age: 72 Year
  Sex: Male

DRUGS (4)
  1. FLAGYL [Suspect]
     Indication: URINARY TRACT INFECTION
     Dates: start: 20130202, end: 20130203
  2. CLAFORAN [Suspect]
     Dates: start: 20130202, end: 20130203
  3. GARAMYCIN (GENTAMYCIN SULFATE) [Concomitant]
  4. DALACIN (CLINDAMYCIN HYDROCHLORIDE) (CLINDAMYCIN HYDROCHLORIDE) [Concomitant]

REACTIONS (2)
  - Rash [None]
  - Pruritus [None]
